FAERS Safety Report 6570297-0 (Version None)
Quarter: 2010Q1

REPORT INFORMATION
  Report Type: 
  Country: None (occurrence: None)
  Receive Date: 20100204
  Receipt Date: 20100201
  Transmission Date: 20100710
  Serious: Yes (Other)
  Sender: FDA-Public Use
  Company Number: IT-BRISTOL-MYERS SQUIBB COMPANY-14585855

PATIENT
  Age: 50 Year
  Sex: Male

DRUGS (2)
  1. BARACLUDE [Suspect]
     Indication: HEPATITIS B
     Dosage: INTERRUPTED ON 08APR09
     Route: 048
     Dates: start: 20090309
  2. VITAMIN K TAB [Concomitant]
     Dates: start: 20040201

REACTIONS (4)
  - DISEASE RECURRENCE [None]
  - HEPATIC FAILURE [None]
  - HEPATITIS B [None]
  - PANCREATIC DISORDER [None]
